FAERS Safety Report 18253710 (Version 1)
Quarter: 2020Q3

REPORT INFORMATION
  Report Type: Report from Study
  Country: CA (occurrence: CA)
  Receive Date: 20200910
  Receipt Date: 20200910
  Transmission Date: 20201103
  Serious: Yes (Other)
  Sender: FDA-Public Use
  Company Number: CA-GLAXOSMITHKLINE-CA2020AMR178649

PATIENT
  Sex: Female

DRUGS (2)
  1. NUCALA [Concomitant]
     Active Substance: MEPOLIZUMAB
     Indication: PRODUCT USED FOR UNKNOWN INDICATION
     Dosage: UNK
     Route: 042
     Dates: start: 20171024
  2. SALBUTAMOL SULPHATE [Suspect]
     Active Substance: ALBUTEROL SULFATE
     Indication: PRODUCT USED FOR UNKNOWN INDICATION
     Dosage: UNK

REACTIONS (9)
  - Sjogren^s syndrome [Unknown]
  - Systemic scleroderma [Unknown]
  - Dermatomyositis [Unknown]
  - Systemic lupus erythematosus [Unknown]
  - Polymyositis [Unknown]
  - Blood count abnormal [Unknown]
  - Rheumatoid arthritis [Unknown]
  - Mixed connective tissue disease [Unknown]
  - Autoimmune hepatitis [Unknown]
